FAERS Safety Report 5892227-7 (Version None)
Quarter: 2008Q3

REPORT INFORMATION
  Report Type: 
  Country: None (occurrence: None)
  Receive Date: 20080922
  Receipt Date: 20080915
  Transmission Date: 20090109
  Serious: Yes (Death)
  Sender: FDA-Public Use
  Company Number: FR-MERCK-0809FRA00042

PATIENT
  Age: 17 Year
  Sex: Male

DRUGS (3)
  1. SINGULAIR [Suspect]
     Indication: ASTHMA
     Route: 048
     Dates: start: 20030101, end: 20080401
  2. SINGULAIR [Suspect]
     Route: 048
     Dates: start: 20080401, end: 20080401
  3. FLUTICASONE PROPIONATE [Suspect]
     Indication: ASTHMA
     Dates: end: 20080401

REACTIONS (2)
  - COMPLETED SUICIDE [None]
  - INTENTIONAL OVERDOSE [None]
